FAERS Safety Report 6481156-6 (Version None)
Quarter: 2009Q4

REPORT INFORMATION
  Report Type: 
  Country: None (occurrence: None)
  Receive Date: 20091208
  Receipt Date: 20090413
  Transmission Date: 20100525
  Serious: No
  Sender: FDA-Public Use
  Company Number: US-AMGEN-KDL338019

PATIENT
  Sex: Female
  Weight: 73.5 kg

DRUGS (3)
  1. ENBREL [Suspect]
     Indication: RHEUMATOID ARTHRITIS
     Route: 058
     Dates: start: 20090227
  2. LEFLUNOMIDE [Concomitant]
     Route: 048
     Dates: start: 19990101
  3. FOSAMAX [Concomitant]

REACTIONS (5)
  - ABDOMINAL PAIN UPPER [None]
  - BACK PAIN [None]
  - DIARRHOEA [None]
  - NAUSEA [None]
  - URINARY TRACT INFECTION [None]
